FAERS Safety Report 19076406 (Version 2)
Quarter: 2022Q2

REPORT INFORMATION
  Report Type: Spontaneous
  Country: JP (occurrence: JP)
  Receive Date: 20210331
  Receipt Date: 20220624
  Transmission Date: 20220720
  Serious: Yes (Death, Hospitalization)
  Sender: FDA-Public Use
  Company Number: JP-TEVA-2021-JP-1895591

PATIENT
  Age: 63 Year
  Sex: Male

DRUGS (7)
  1. ETOPOSIDE [Suspect]
     Active Substance: ETOPOSIDE
     Indication: Blastic plasmacytoid dendritic cell neoplasia
     Dosage: RECEIVED ON DAY 1-3; DOSE-REDUCED SMILE REGIMEN
     Route: 065
  2. IFOSFAMIDE [Suspect]
     Active Substance: IFOSFAMIDE
     Indication: Blastic plasmacytoid dendritic cell neoplasia
     Dosage: RECEIVED ON DAY 1-3; DOSE-REDUCED SMILE REGIMEN
     Route: 065
  3. DEXAMETHASONE [Suspect]
     Active Substance: DEXAMETHASONE
     Indication: Blastic plasmacytoid dendritic cell neoplasia
     Dosage: RECEIVED 30MG/BODY ON DAY 1-3; DOSE-REDUCED SMILE REGIMEN
     Route: 065
  4. ASPARAGINASE [Suspect]
     Active Substance: ASPARAGINASE
     Indication: Blastic plasmacytoid dendritic cell neoplasia
     Dosage: RECEIVED 4000 U/M2 ON DAY 7, 9, 11, 13, 15, 17 AND 19; DOSE-REDUCED SMILE REGIMEN
     Route: 065
  5. NOREPINEPHRINE [Suspect]
     Active Substance: NOREPINEPHRINE
     Indication: Circulatory collapse
     Route: 065
  6. SODIUM BICARBONATE [Suspect]
     Active Substance: SODIUM BICARBONATE
     Indication: Metabolic acidosis
     Route: 065
  7. FEBUXOSTAT [Concomitant]
     Active Substance: FEBUXOSTAT
     Indication: Prophylaxis
     Route: 065

REACTIONS (4)
  - Tumour lysis syndrome [Fatal]
  - Drug ineffective [Fatal]
  - Circulatory collapse [Fatal]
  - Metabolic acidosis [Fatal]
